FAERS Safety Report 5656023-8 (Version None)
Quarter: 2008Q1

REPORT INFORMATION
  Report Type: 
  Country: None (occurrence: None)
  Receive Date: 20080307
  Receipt Date: 20080229
  Transmission Date: 20080703
  Serious: Yes (Death)
  Sender: FDA-Public Use
  Company Number: US-GENENTECH-257041

PATIENT
  Age: 6 Year
  Sex: Male

DRUGS (12)
  1. RITUXAN [Suspect]
     Indication: BURKITT'S LYMPHOMA
  2. IFOSFAMIDE [Concomitant]
     Indication: BURKITT'S LYMPHOMA
  3. CARBOPLATIN [Concomitant]
     Indication: BURKITT'S LYMPHOMA
  4. ETOPOSIDE [Concomitant]
     Indication: BURKITT'S LYMPHOMA
  5. CYCLOSPORINE [Concomitant]
     Indication: PROPHYLAXIS AGAINST TRANSPLANT REJECTION
  6. CIDOFOVIR [Concomitant]
     Indication: DIARRHOEA
  7. CORTICOSTEROIDS (UNK INGREDIENTS) [Concomitant]
     Indication: GRAFT VERSUS HOST DISEASE
  8. CYCLOPHOSPHAMIDE [Concomitant]
     Indication: DRUG USE FOR UNKNOWN INDICATION
  9. DEXAMETHASONE TAB [Concomitant]
     Indication: DRUG USE FOR UNKNOWN INDICATION
  10. IMMUNE GLOBULIN INTRAVENOUS (HUMAN) [Concomitant]
     Indication: DRUG USE FOR UNKNOWN INDICATION
  11. METHOTREXATE [Concomitant]
     Indication: PROPHYLAXIS AGAINST TRANSPLANT REJECTION
  12. PLASMAPHERESIS [Concomitant]
     Indication: DRUG USE FOR UNKNOWN INDICATION

REACTIONS (1)
  - ENCEPHALOPATHY [None]
